FAERS Safety Report 7145294-7 (Version None)
Quarter: 2010Q4

REPORT INFORMATION
  Report Type: 
  Country: None (occurrence: None)
  Receive Date: 20101123
  Receipt Date: 20101108
  Transmission Date: 20110411
  Serious: Yes (Other)
  Sender: FDA-Public Use
  Company Number: 1000017353

PATIENT
  Age: 31 Year
  Sex: Female

DRUGS (9)
  1. ESCITALOPRAM [Suspect]
     Dosage: 10 MG (10 MG,1 IN 1 D),ORAL
     Route: 048
     Dates: start: 20100724
  2. TAXILAN (PERAZIN) [Suspect]
     Dosage: 400 MG (400 MG,1 IN 1 D),ORAL ; 350 MG (350 MG,1 IN 1 D),ORAL
     Route: 048
     Dates: start: 20100708, end: 20100901
  3. TAXILAN (PERAZIN) [Suspect]
     Dosage: 400 MG (400 MG,1 IN 1 D),ORAL ; 350 MG (350 MG,1 IN 1 D),ORAL
     Route: 048
     Dates: start: 20100902
  4. HALDOL [Suspect]
     Dosage: SEE IMAGE
     Route: 048
     Dates: start: 20100708, end: 20100714
  5. HALDOL [Suspect]
     Dosage: SEE IMAGE
     Route: 048
     Dates: start: 20100715, end: 20100715
  6. HALDOL [Suspect]
     Dosage: SEE IMAGE
     Route: 048
     Dates: start: 20100716, end: 20100718
  7. HALDOL [Suspect]
     Dosage: SEE IMAGE
     Route: 048
     Dates: start: 20100719, end: 20100719
  8. HALDOL [Suspect]
     Dosage: SEE IMAGE
     Route: 048
     Dates: start: 20100720, end: 20100822
  9. HALDOL [Suspect]
     Dosage: 0.5 MG (0.5 MG,1 IN 1 D),ORAL
     Route: 048
     Dates: start: 20100823, end: 20100825

REACTIONS (6)
  - DIZZINESS [None]
  - DRUG INTERACTION [None]
  - FALL [None]
  - HYPOTENSION [None]
  - PARKINSONISM [None]
  - SYNCOPE [None]
